FAERS Safety Report 16845820 (Version 1)
Quarter: 2019Q3

REPORT INFORMATION
  Report Type: Spontaneous
  Country: US (occurrence: US)
  Receive Date: 20190924
  Receipt Date: 20190924
  Transmission Date: 20191005
  Serious: No
  Sender: FDA-Public Use
  Company Number: US-CATALYST PHARMACEUTICALS, INC-2019CAT00305

PATIENT
  Sex: Male
  Weight: 106.58 kg

DRUGS (6)
  1. COQ10 [Concomitant]
     Active Substance: UBIDECARENONE
     Dosage: 200 MG
  2. MESTINON [Concomitant]
     Active Substance: PYRIDOSTIGMINE BROMIDE
     Dosage: 120 MG, 3X/DAY
  3. FIRDAPSE [Suspect]
     Active Substance: AMIFAMPRIDINE
     Indication: CHRONIC INFLAMMATORY DEMYELINATING POLYRADICULONEUROPATHY
  4. LAMICTAL [Concomitant]
     Active Substance: LAMOTRIGINE
     Dosage: 25 MG, 2X/DAY
  5. FIRDAPSE [Suspect]
     Active Substance: AMIFAMPRIDINE
     Indication: MYASTHENIC SYNDROME
     Dosage: 20 MG, 3X/DAY
     Route: 048
     Dates: start: 20190726
  6. FIRDAPSE [Suspect]
     Active Substance: AMIFAMPRIDINE
     Indication: STIFF PERSON SYNDROME
     Dosage: 10 MG, 3X/DAY
     Route: 048
     Dates: start: 201902, end: 20190725

REACTIONS (6)
  - Hyperhidrosis [Recovering/Resolving]
  - Dysuria [Recovering/Resolving]
  - Urinary hesitation [Recovering/Resolving]
  - Anxiety [Unknown]
  - Feeling hot [Not Recovered/Not Resolved]
  - Cold sweat [Recovering/Resolving]

NARRATIVE: CASE EVENT DATE: 2019
